FAERS Safety Report 6059058-9 (Version None)
Quarter: 2009Q1

REPORT INFORMATION
  Report Type: 
  Country: None (occurrence: None)
  Receive Date: 20090130
  Receipt Date: 20090119
  Transmission Date: 20090719
  Serious: Yes (Hospitalization)
  Sender: FDA-Public Use
  Company Number: B0555118A

PATIENT
  Age: 84 Year
  Sex: Female

DRUGS (7)
  1. AUGMENTIN '125' [Suspect]
     Indication: ERYSIPELAS
     Route: 048
     Dates: start: 20081106, end: 20081115
  2. PYOSTACINE [Suspect]
     Indication: ERYSIPELAS
     Dosage: 500MG UNKNOWN
     Route: 048
     Dates: start: 20081115, end: 20081118
  3. PAROXETINE HCL [Concomitant]
     Route: 065
  4. SPIRONOLACTONE [Concomitant]
     Route: 065
  5. INIPOMP [Concomitant]
     Dosage: 20MG UNKNOWN
     Route: 048
  6. BROMAZEPAM [Concomitant]
     Route: 065
  7. AMOXICILLIN AND CLAVULANATE POTASSIUM [Concomitant]
     Indication: BRONCHITIS
     Route: 065
     Dates: start: 20081016, end: 20081026

REACTIONS (6)
  - ACUTE GENERALISED EXANTHEMATOUS PUSTULOSIS [None]
  - RASH MACULO-PAPULAR [None]
  - RASH PUSTULAR [None]
  - SKIN DISORDER [None]
  - SKIN EXFOLIATION [None]
  - SKIN LESION [None]
